FAERS Safety Report 13981441 (Version 2)
Quarter: 2018Q1

REPORT INFORMATION
  Report Type: Spontaneous
  Country: US (occurrence: US)
  Receive Date: 20170918
  Receipt Date: 20180110
  Transmission Date: 20180508
  Serious: No
  Sender: FDA-Public Use
  Company Number: US-PFIZER INC-2017399703

PATIENT
  Age: 75 Year
  Sex: Female
  Weight: 77 kg

DRUGS (6)
  1. GABAPENTIN. [Concomitant]
     Active Substance: GABAPENTIN
     Indication: NEUROPATHY PERIPHERAL
     Dosage: 300 MG, AS NEEDED [300 MG Q8?]
     Dates: start: 20170818
  2. ONDANSETRON [Concomitant]
     Active Substance: ONDANSETRON
     Indication: NAUSEA
     Dosage: UNK UNK, AS NEEDED [ONE PO Q8HR, PRN]
     Route: 048
     Dates: start: 20170922
  3. ONDANSETRON [Concomitant]
     Active Substance: ONDANSETRON
     Indication: VOMITING
  4. FEMARA [Concomitant]
     Active Substance: LETROZOLE
     Indication: OESTROGEN RECEPTOR POSITIVE BREAST CANCER
     Dosage: 2.5 MG, 1X/DAY
     Route: 048
     Dates: start: 20170818
  5. IBRANCE [Suspect]
     Active Substance: PALBOCICLIB
     Indication: BREAST CANCER METASTATIC
     Dosage: 125 MG, CYCLIC [QD, 3 WEEKS ON + 1 WEEK OFF]
     Route: 048
     Dates: start: 20170818, end: 20170821
  6. IBRANCE [Suspect]
     Active Substance: PALBOCICLIB
     Dosage: 125 MG, CYCLIC (DAYS 1-21 Q28 DAYS)
     Route: 048
     Dates: start: 20170830, end: 2017

REACTIONS (4)
  - Nausea [Recovering/Resolving]
  - Asthenia [Recovering/Resolving]
  - Tremor [Unknown]
  - Vomiting [Recovering/Resolving]

NARRATIVE: CASE EVENT DATE: 20170819
